FAERS Safety Report 19552234 (Version 1)
Quarter: 2021Q3

REPORT INFORMATION
  Report Type: Spontaneous
  Country: GR (occurrence: GR)
  Receive Date: 20210715
  Receipt Date: 20210715
  Transmission Date: 20211014
  Serious: Yes (Hospitalization, Other)
  Sender: FDA-Public Use
  Company Number: GR-ADVANZ PHARMA-202107005027

PATIENT

DRUGS (8)
  1. METHOTREXATE. [Suspect]
     Active Substance: METHOTREXATE
     Indication: RHEUMATOID ARTHRITIS
     Dosage: 10 MG TWICE WEEKLY (DURING THE LAST 5 YEARS)
  2. TEICOPLANIN [Concomitant]
     Active Substance: TEICOPLANIN
     Dosage: (ANTIBIOTIC REGIMEN WAS MODIFIED)
  3. ETANERCEPT [Concomitant]
     Active Substance: ETANERCEPT
     Dosage: 50 MG, WEEKLY (LAST YEAR BEFORE ADMISSION)
  4. PREDNISOLONE. [Suspect]
     Active Substance: PREDNISOLONE
     Indication: RHEUMATOID ARTHRITIS
     Dosage: 5 MG, BID, (DURING LAST 5 YEARS)
  5. DOXYCYCLINE. [Concomitant]
     Active Substance: DOXYCYCLINE
     Dosage: (ANTIBIOTIC REGIMEN WAS MODIFIED)
  6. PREDNISOLONE. [Suspect]
     Active Substance: PREDNISOLONE
     Dosage: DOUBLING DOSE OF PREDNISOLONE
  7. LEFLUNOMIDE. [Concomitant]
     Active Substance: LEFLUNOMIDE
     Dosage: 10 MG, QD, (LAST YEAR BEFORE ADMISSION)
  8. PIPERACILLIN AND TAZOBACTAM [Concomitant]
     Active Substance: PIPERACILLIN SODIUM\TAZOBACTAM SODIUM
     Dosage: (ANTIBIOTIC REGIMEN WAS MODIFIED)

REACTIONS (1)
  - Visceral leishmaniasis [Recovered/Resolved]
